FAERS Safety Report 9138001 (Version 1)
Quarter: 2013Q1

REPORT INFORMATION
  Report Type: Spontaneous
  Country: US (occurrence: US)
  Receive Date: 20130304
  Receipt Date: 20130304
  Transmission Date: 20140127
  Serious: Yes (Hospitalization)
  Sender: FDA-Public Use
  Company Number: US-PFIZER INC-2013069597

PATIENT
  Age: 6 Year
  Sex: Male

DRUGS (1)
  1. DILANTIN [Suspect]
     Dosage: 50 MG, 3X/DAY

REACTIONS (4)
  - Toxicity to various agents [Recovered/Resolved]
  - VIth nerve paralysis [Recovered/Resolved]
  - Nervous system disorder [Recovered/Resolved]
  - Brain stem syndrome [Recovered/Resolved]
